FAERS Safety Report 14977493 (Version 1)
Quarter: 2018Q2

REPORT INFORMATION
  Report Type: Spontaneous
  Country: AU (occurrence: AU)
  Receive Date: 20180606
  Receipt Date: 20180606
  Transmission Date: 20180711
  Serious: Yes (Hospitalization)
  Sender: FDA-Public Use
  Company Number: AU-ACTELION-A-CH2018-173016

PATIENT
  Age: 62 Year
  Sex: Female

DRUGS (2)
  1. SILDENAFIL. [Suspect]
     Active Substance: SILDENAFIL
     Indication: PULMONARY ARTERIAL HYPERTENSION
     Dosage: 50 MG, TID
     Route: 048
     Dates: start: 201605
  2. OPSUMIT [Suspect]
     Active Substance: MACITENTAN
     Indication: PULMONARY ARTERIAL HYPERTENSION
     Dosage: 10 MG, OD
     Route: 048
     Dates: start: 20150805

REACTIONS (1)
  - Hyponatraemia [Unknown]
